FAERS Safety Report 20037664 (Version 2)
Quarter: 2021Q4

REPORT INFORMATION
  Report Type: Spontaneous
  Country: JP (occurrence: JP)
  Receive Date: 20211105
  Receipt Date: 20211223
  Transmission Date: 20220303
  Serious: Yes (Other)
  Sender: FDA-Public Use
  Company Number: JP-NOVARTISPH-NVSJ2021JP018008

PATIENT
  Age: 63 Year
  Sex: Female

DRUGS (11)
  1. COSENTYX [Suspect]
     Active Substance: SECUKINUMAB
     Indication: Dermatitis psoriasiform
     Dosage: 300 MG
     Route: 058
     Dates: start: 20190917, end: 20210111
  2. COSENTYX [Suspect]
     Active Substance: SECUKINUMAB
     Indication: Pustular psoriasis
  3. NEORAL [Suspect]
     Active Substance: CYCLOSPORINE
     Indication: Still^s disease
     Dosage: 200 MG
     Route: 048
     Dates: start: 201804, end: 20180517
  4. NEORAL [Suspect]
     Active Substance: CYCLOSPORINE
     Indication: Dermatitis psoriasiform
     Dosage: 150 MG
     Route: 048
     Dates: start: 20180518, end: 20180701
  5. NEORAL [Suspect]
     Active Substance: CYCLOSPORINE
     Indication: Pustular psoriasis
     Dosage: 100 MG
     Route: 048
     Dates: start: 20180702, end: 20190917
  6. ACTEMRA [Suspect]
     Active Substance: TOCILIZUMAB
     Indication: Still^s disease
     Dosage: UNK
     Route: 065
  7. PREDNISOLONE [Concomitant]
     Active Substance: PREDNISOLONE
     Indication: Still^s disease
     Dosage: UNK
     Route: 065
  8. METHOTREXATE [Concomitant]
     Active Substance: METHOTREXATE
     Indication: Still^s disease
     Dosage: UNK
     Route: 065
  9. AZATHIOPRINE [Concomitant]
     Active Substance: AZATHIOPRINE
     Indication: Still^s disease
     Dosage: UNK
     Route: 065
  10. PROTOPIC [Concomitant]
     Active Substance: TACROLIMUS
     Indication: Still^s disease
     Dosage: UNK
     Route: 061
  11. ETRETINATE [Concomitant]
     Active Substance: ETRETINATE
     Indication: Dermatitis psoriasiform
     Dosage: UNK
     Route: 065

REACTIONS (3)
  - Still^s disease [Recovered/Resolved]
  - Concomitant disease aggravated [Recovered/Resolved]
  - Drug ineffective [Unknown]
